FAERS Safety Report 6158762-1 (Version None)
Quarter: 2009Q2

REPORT INFORMATION
  Report Type: 
  Country: None (occurrence: None)
  Receive Date: 20090417
  Receipt Date: 20090407
  Transmission Date: 20091009
  Serious: Yes (Hospitalization)
  Sender: FDA-Public Use
  Company Number: B0568950A

PATIENT
  Sex: Female

DRUGS (10)
  1. DEROXAT [Suspect]
     Indication: DEPRESSIVE SYMPTOM
     Dosage: 20MG PER DAY
     Route: 048
     Dates: start: 20090129, end: 20090204
  2. FLUDEX [Suspect]
     Dosage: 1.5MG PER DAY
     Route: 048
     Dates: end: 20090204
  3. IMOVANE [Concomitant]
     Indication: INSOMNIA
     Dosage: 7.5MG PER DAY
     Route: 048
  4. AMLODIPINE BESYLATE [Concomitant]
     Dosage: 5MG PER DAY
     Route: 048
  5. PROPRANOLOL [Concomitant]
     Indication: ESSENTIAL TREMOR
     Dosage: 160MG PER DAY
     Route: 048
     Dates: start: 20060101
  6. CORVASAL [Concomitant]
     Indication: ANGINA PECTORIS
     Dosage: 2MG THREE TIMES PER DAY
     Route: 048
  7. PARIET [Concomitant]
     Dosage: 20MG PER DAY
     Route: 048
  8. DIFFU K [Concomitant]
     Dosage: 1CAP PER DAY
     Route: 048
  9. DAFALGAN [Concomitant]
     Indication: PAIN
     Dosage: 1G THREE TIMES PER DAY
     Route: 048
  10. LACTULOSE [Concomitant]
     Indication: CONSTIPATION
     Dosage: 1UNIT THREE TIMES PER DAY
     Route: 048

REACTIONS (3)
  - ASTHENIA [None]
  - HYPONATRAEMIA [None]
  - PSYCHOMOTOR RETARDATION [None]
